FAERS Safety Report 9211051 (Version 1)
Quarter: 2013Q2

REPORT INFORMATION
  Report Type: Report from Study
  Country: US (occurrence: US)
  Receive Date: 20130404
  Receipt Date: 20130404
  Transmission Date: 20140414
  Serious: Yes (Other)
  Sender: FDA-Public Use
  Company Number: US-ABBOTT-13P-163-1070959-00

PATIENT
  Sex: Male

DRUGS (8)
  1. ANDROGEL 1% [Suspect]
     Indication: HYPOGONADISM
  2. ANDROGEL 1% [Suspect]
  3. BRILINTA [Concomitant]
     Indication: STENT PLACEMENT
  4. LISINOPRIL [Concomitant]
     Indication: HYPERTENSION
  5. METOPROLOL [Concomitant]
     Indication: HYPERTENSION
  6. EXTENDED RELEASE MORPHINE [Concomitant]
     Indication: SPINAL COLUMN STENOSIS
  7. PERCOCET [Concomitant]
     Indication: SPINAL COLUMN STENOSIS
  8. LYRICA [Concomitant]
     Indication: SPINAL COLUMN STENOSIS

REACTIONS (10)
  - Coronary artery occlusion [Recovered/Resolved]
  - Chest pain [Recovered/Resolved]
  - Coronary artery occlusion [Recovered/Resolved]
  - Incorrect dose administered [Not Recovered/Not Resolved]
  - Fatigue [Recovered/Resolved]
  - Depression [Recovered/Resolved]
  - Delusional disorder, unspecified type [Recovered/Resolved]
  - Fatigue [Recovered/Resolved]
  - Irritability [Recovered/Resolved]
  - Asthenia [Recovered/Resolved]
